FAERS Safety Report 19924438 (Version 1)
Quarter: 2021Q4

REPORT INFORMATION
  Report Type: Spontaneous
  Country: US (occurrence: US)
  Receive Date: 20211005
  Receipt Date: 20211005
  Transmission Date: 20220303
  Serious: No
  Sender: FDA-Public Use
  Company Number: None

PATIENT
  Age: 40 Year
  Sex: Female
  Weight: 110 kg

DRUGS (1)
  1. NITROFURANTOIN [Suspect]
     Active Substance: NITROFURANTOIN
     Indication: Urinary tract infection
     Route: 048
     Dates: start: 20210916, end: 20210921

REACTIONS (4)
  - Pulmonary oedema [None]
  - Hypertension [None]
  - Lung infiltration [None]
  - Pulmonary toxicity [None]

NARRATIVE: CASE EVENT DATE: 20210921
